FAERS Safety Report 25576507 (Version 2)
Quarter: 2025Q3

REPORT INFORMATION
  Report Type: Spontaneous
  Country: US (occurrence: US)
  Receive Date: 20250718
  Receipt Date: 20250720
  Transmission Date: 20251021
  Serious: No
  Sender: LUPIN
  Company Number: US-LUPIN PHARMACEUTICALS INC.-2025-06087

PATIENT
  Age: 75 Year
  Weight: 88.435 kg

DRUGS (2)
  1. LEVALBUTEROL TARTRATE [Suspect]
     Active Substance: LEVALBUTEROL TARTRATE
     Indication: Dyspnoea
     Dosage: BID (2 PUFFS BY MOUTH TWICE A DAY)
  2. LEVALBUTEROL TARTRATE [Suspect]
     Active Substance: LEVALBUTEROL TARTRATE
     Dosage: BID (2 PUFFS BY MOUTH TWICE A DAY)

REACTIONS (5)
  - Loss of personal independence in daily activities [Unknown]
  - Illness [Unknown]
  - Drug dose omission by device [Unknown]
  - Prescription drug used without a prescription [Unknown]
  - Device delivery system issue [Unknown]
